FAERS Safety Report 23712008 (Version 1)
Quarter: 2024Q2

REPORT INFORMATION
  Report Type: Spontaneous
  Country: KR (occurrence: KR)
  Receive Date: 20240405
  Receipt Date: 20240405
  Transmission Date: 20240716
  Serious: Yes (Other)
  Sender: FDA-Public Use
  Company Number: KR-TAKEDA-2024TUS031094

PATIENT
  Age: 61 Year
  Sex: Female

DRUGS (3)
  1. PANTOPRAZOLE SODIUM [Suspect]
     Active Substance: PANTOPRAZOLE SODIUM
     Indication: Gastric ulcer
     Dosage: 1 DF, 1X/DAY
     Route: 048
     Dates: start: 20200504, end: 20200504
  2. EBASTINE [Suspect]
     Active Substance: EBASTINE
     Indication: Gastric ulcer
     Dosage: 1 DOSAGE FORM, QD
     Route: 048
     Dates: start: 20200504, end: 20200504
  3. LIDOCAINE [Suspect]
     Active Substance: LIDOCAINE
     Indication: Gastric ulcer
     Dosage: 1 MILLILITER, QD
     Route: 065
     Dates: start: 20200504, end: 20200504

REACTIONS (2)
  - Urticaria [Recovering/Resolving]
  - Dyspnoea [Recovering/Resolving]

NARRATIVE: CASE EVENT DATE: 20200504
